FAERS Safety Report 8819130 (Version 1)
Quarter: 2012Q4

REPORT INFORMATION
  Report Type: 
  Country: GB (occurrence: GB)
  Receive Date: 20121001
  Receipt Date: 20121001
  Transmission Date: 20130627
  Serious: Yes (Other)
  Sender: FDA-Public Use
  Company Number: GB-MILLENNIUM PHARMACEUTICALS, INC.-2012-06668

PATIENT

DRUGS (1)
  1. VELCADE [Suspect]
     Indication: AMYLOIDOSIS
     Dosage: 1.3 mg, UNK
     Route: 065

REACTIONS (3)
  - Pulmonary fibrosis [Not Recovered/Not Resolved]
  - Renal impairment [None]
  - Off label use [Unknown]
